FAERS Safety Report 9172168 (Version 1)
Quarter: 2013Q1

REPORT INFORMATION
  Report Type: Spontaneous
  Country: NL (occurrence: NL)
  Receive Date: 20130319
  Receipt Date: 20130319
  Transmission Date: 20140127
  Serious: Yes (Other)
  Sender: FDA-Public Use
  Company Number: NL-PFIZER INC-2013088130

PATIENT
  Age: 71 Year
  Sex: Male

DRUGS (1)
  1. ATORVASTATIN PFIZER [Suspect]
     Dosage: 10 MG, UNK

REACTIONS (4)
  - Myocardial infarction [Unknown]
  - Stent placement [Unknown]
  - Pain in extremity [Unknown]
  - Myalgia [Unknown]
